FAERS Safety Report 13647127 (Version 1)
Quarter: 2017Q2

REPORT INFORMATION
  Report Type: Spontaneous
  Country: None (occurrence: US)
  Receive Date: 20170613
  Receipt Date: 20170613
  Transmission Date: 20170830
  Serious: Yes (Hospitalization)
  Sender: FDA-Public Use
  Company Number: None

PATIENT
  Age: 55 Year
  Sex: Male
  Weight: 57 kg

DRUGS (1)
  1. ERBITUX [Suspect]
     Active Substance: CETUXIMAB
     Dosage: PT RECEIVED 700 MG ON 5/14/12 AND 430 MG ON 5/21/12
     Dates: end: 20120521

REACTIONS (1)
  - Abscess neck [None]

NARRATIVE: CASE EVENT DATE: 20120522
